FAERS Safety Report 18858360 (Version 2)
Quarter: 2021Q1

REPORT INFORMATION
  Report Type: Report from Study
  Country: US (occurrence: US)
  Receive Date: 20210208
  Receipt Date: 20210310
  Transmission Date: 20210420
  Serious: Yes (Life-Threatening, Hospitalization, Other)
  Sender: FDA-Public Use
  Company Number: US-ROCHE-2764371

PATIENT
  Age: 79 Year
  Sex: Female
  Weight: 63 kg

DRUGS (4)
  1. OBINUTUZUMAB. [Suspect]
     Active Substance: OBINUTUZUMAB
     Indication: CHRONIC LYMPHOCYTIC LEUKAEMIA
     Dosage: C1D1, 900 MG IV ON C1D2, 1000 MG IV ON C1D8 + C1D15, C2?6D1. ON 24/JUN/2020, SHE RECEIVED LAST ADMIN
     Route: 042
     Dates: start: 20200205
  2. IBRUTINIB [Suspect]
     Active Substance: IBRUTINIB
     Indication: CHRONIC LYMPHOCYTIC LEUKAEMIA
     Dosage: FOR 15 CYCLES. ON 30/DEC/2020, SHE RECEIVED LAST ADMINISTRATION OF ORAL IBRUTINIB.
     Route: 048
     Dates: start: 20201209, end: 20201209
  3. IBRUTINIB [Suspect]
     Active Substance: IBRUTINIB
     Dosage: FOR 15 CYCLES
     Route: 048
     Dates: start: 20200205
  4. VENETOCLAX. [Suspect]
     Active Substance: VENETOCLAX
     Indication: CHRONIC LYMPHOCYTIC LEUKAEMIA
     Dosage: ON DAYS 1?7 CYCLE 3, 50 MG ON DAYS 8?14, CYCLE 3, 100 MG ON DAYS 15?21, CYCLE 3, 200 MG ON DAYS 22?2
     Route: 048
     Dates: start: 20201209, end: 20201230

REACTIONS (8)
  - Weight decreased [Recovering/Resolving]
  - SARS-CoV-2 test positive [Recovering/Resolving]
  - Troponin I increased [Recovering/Resolving]
  - Hypoalbuminaemia [Recovering/Resolving]
  - Hyponatraemia [Recovered/Resolved]
  - Sepsis [Recovering/Resolving]
  - Acute respiratory failure [Recovering/Resolving]
  - Pneumonia [Recovering/Resolving]

NARRATIVE: CASE EVENT DATE: 20201223
